FAERS Safety Report 17684901 (Version 2)
Quarter: 2020Q4

REPORT INFORMATION
  Report Type: Report from Study
  Country: CA (occurrence: CA)
  Receive Date: 20200420
  Receipt Date: 20201008
  Transmission Date: 20210113
  Serious: Yes (Other)
  Sender: FDA-Public Use
  Company Number: CA-SAMSUNG BIOEPIS-SB-2020-13715

PATIENT
  Sex: Female

DRUGS (1)
  1. BRENZYS [Suspect]
     Active Substance: ETANERCEPT
     Indication: ANKYLOSING SPONDYLITIS
     Route: 058
     Dates: start: 20200211

REACTIONS (5)
  - Exposure to communicable disease [Unknown]
  - Immunosuppression [Unknown]
  - Product dispensing error [Unknown]
  - Intercepted product storage error [Unknown]
  - Inappropriate schedule of product administration [Unknown]
